FAERS Safety Report 14544511 (Version 1)
Quarter: 2018Q1

REPORT INFORMATION
  Report Type: Report from Study
  Country: US (occurrence: US)
  Receive Date: 20180217
  Receipt Date: 20180217
  Transmission Date: 20180509
  Serious: No
  Sender: FDA-Public Use
  Company Number: PHEH2018US006473

PATIENT
  Sex: Female

DRUGS (1)
  1. COSENTYX [Suspect]
     Active Substance: SECUKINUMAB
     Indication: PRODUCT USED FOR UNKNOWN INDICATION
     Dosage: 300 G, QMO
     Route: 058

REACTIONS (4)
  - Pain of skin [Unknown]
  - Condition aggravated [Unknown]
  - Erythema [Unknown]
  - Discomfort [Unknown]
